FAERS Safety Report 7216327-4 (Version None)
Quarter: 2011Q1

REPORT INFORMATION
  Report Type: 
  Country: None (occurrence: None)
  Receive Date: 20110107
  Receipt Date: 20101230
  Transmission Date: 20110831
  Serious: Yes (Hospitalization)
  Sender: FDA-Public Use
  Company Number: US-JNJFOC-20101005771

PATIENT
  Sex: Female
  Weight: 63.5 kg

DRUGS (8)
  1. MS TYLENOL SINUS DAY NON-DROWSY [Suspect]
     Indication: SINUS HEADACHE
     Route: 048
  2. ZOCOR [Concomitant]
     Indication: BLOOD CHOLESTEROL INCREASED
  3. TIMOPTIC [Concomitant]
     Indication: GLAUCOMA
  4. MS TYLENOL SINUS DAY NON-DROWSY [Suspect]
     Indication: SINUSITIS
     Route: 048
  5. BRIMONIDINE TARTRATE [Concomitant]
     Indication: GLAUCOMA
  6. MS TYLENOL SINUS DAY NON-DROWSY [Suspect]
     Indication: HEADACHE
     Route: 048
  7. SALUTENSIN [Concomitant]
     Indication: HYPERTENSION
  8. XALATAN [Concomitant]
     Indication: GLAUCOMA

REACTIONS (2)
  - EXPIRED DRUG ADMINISTERED [None]
  - STEVENS-JOHNSON SYNDROME [None]
